FAERS Safety Report 6039970-7 (Version None)
Quarter: 2009Q1

REPORT INFORMATION
  Report Type: 
  Country: None (occurrence: None)
  Receive Date: 20090116
  Receipt Date: 20071106
  Transmission Date: 20090719
  Serious: No
  Sender: FDA-Public Use
  Company Number: US-BRISTOL-MYERS SQUIBB COMPANY-13971163

PATIENT
  Age: 40 Year
  Sex: Female
  Weight: 50 kg

DRUGS (5)
  1. ABILIFY [Suspect]
     Indication: BIPOLAR DISORDER
  2. CYMBALTA [Concomitant]
  3. CLONOPIN [Concomitant]
  4. TRAZODONE HCL [Concomitant]
  5. LITHIUM CARBONATE [Concomitant]

REACTIONS (2)
  - DYSKINESIA [None]
  - TREMOR [None]
